FAERS Safety Report 8580908-6 (Version None)
Quarter: 2012Q3

REPORT INFORMATION
  Report Type: 
  Country: None (occurrence: None)
  Receive Date: 20120809
  Receipt Date: 20120801
  Transmission Date: 20120928
  Serious: Yes (Hospitalization, Other)
  Sender: FDA-Public Use
  Company Number: US-GENZYME-MOZO-1000727

PATIENT
  Sex: Female
  Weight: 44 kg

DRUGS (9)
  1. MOZOBIL [Suspect]
     Indication: ACUTE MYELOID LEUKAEMIA
     Dosage: 12 MG/M2, QD
     Route: 042
     Dates: start: 20120604, end: 20120609
  2. MEROPENEM [Concomitant]
     Indication: ANTI-INFECTIVE THERAPY
     Dosage: 850 MG, TID
     Route: 042
     Dates: start: 20120630, end: 20120713
  3. ETOPOSIDE [Concomitant]
     Indication: ACUTE MYELOID LEUKAEMIA
     Dosage: UNK
     Route: 042
     Dates: start: 20120604, end: 20120609
  4. CYTARABINE [Concomitant]
     Indication: ACUTE MYELOID LEUKAEMIA
     Dosage: UNK
     Route: 042
     Dates: start: 20120604, end: 20120609
  5. ACETAMINOPHEN [Concomitant]
     Indication: PRODUCT USED FOR UNKNOWN INDICATION
     Dosage: 650 MG, UNK
     Route: 065
     Dates: start: 20120528
  6. MORPHINE SULFATE [Concomitant]
     Indication: ACUTE MYELOID LEUKAEMIA
     Dosage: 5 MG/ML, UNK
     Route: 065
     Dates: start: 20120702
  7. ONDANSETRON [Concomitant]
     Indication: PRODUCT USED FOR UNKNOWN INDICATION
     Dosage: 6 MG, UNK
     Route: 065
     Dates: start: 20120604
  8. VANCOMYCIN [Concomitant]
     Indication: ANTI-INFECTIVE THERAPY
     Dosage: 1000 MG, TID
     Route: 042
     Dates: start: 20120701, end: 20120713
  9. SOLUTIONS FOR PARENTERAL NUTRITION [Concomitant]
     Indication: PARENTERAL NUTRITION
     Dosage: 109 ML, UNK
     Route: 051
     Dates: start: 20120704, end: 20120705

REACTIONS (4)
  - THERAPEUTIC RESPONSE DECREASED [None]
  - PLEURAL EFFUSION [None]
  - HYPOKALAEMIA [None]
  - LOBAR PNEUMONIA [None]
